FAERS Safety Report 21804768 (Version 1)
Quarter: 2023Q1

REPORT INFORMATION
  Report Type: Report from Study
  Country: US (occurrence: US)
  Receive Date: 20230102
  Receipt Date: 20230102
  Transmission Date: 20230418
  Serious: No
  Sender: FDA-Public Use
  Company Number: US-ABBVIE-4255359

PATIENT
  Sex: Female

DRUGS (13)
  1. VENCLEXTA [Suspect]
     Active Substance: VENETOCLAX
     Indication: Chronic lymphocytic leukaemia
     Route: 048
     Dates: start: 20220518
  2. CALCITRIOL [Concomitant]
     Active Substance: CALCITRIOL
     Indication: Product used for unknown indication
     Route: 065
  3. SYNTHROID [Concomitant]
     Active Substance: LEVOTHYROXINE SODIUM
     Indication: Product used for unknown indication
     Route: 065
  4. Rituxan Intravenous Solution 100 MG [Concomitant]
     Indication: Product used for unknown indication
     Dosage: INTRAVENOUS SOLUTION
     Route: 042
  5. Vitamin B12 Oral Tablet Extended Re [Concomitant]
     Indication: Product used for unknown indication
     Route: 048
  6. Torsemide Oral Tablet 5 MG [Concomitant]
     Indication: Product used for unknown indication
     Route: 048
  7. IMODIUM A-D [Concomitant]
     Active Substance: LOPERAMIDE HYDROCHLORIDE
     Indication: Product used for unknown indication
     Route: 065
  8. VITAMIN D3 [Concomitant]
     Active Substance: CHOLECALCIFEROL
     Indication: Product used for unknown indication
     Route: 065
  9. Entresto Oral Tablet 24-26 MG [Concomitant]
     Indication: Product used for unknown indication
     Dosage: 24-26 MG
     Route: 048
  10. Eliquis Oral Tablet 2.5 MG [Concomitant]
     Indication: Product used for unknown indication
     Route: 048
  11. Vitamin D (Cholecalciferol) Oral Ca [Concomitant]
     Indication: Product used for unknown indication
     Route: 048
  12. Medrol Oral Tablet Therapy Pack [Concomitant]
     Indication: Product used for unknown indication
     Dosage: THERAPY PACK
     Route: 048
  13. METAPROTERENOL SULFATE [Concomitant]
     Active Substance: METAPROTERENOL SULFATE
     Indication: Product used for unknown indication
     Route: 065

REACTIONS (1)
  - Diarrhoea [Unknown]
